FAERS Safety Report 9178155 (Version 2)
Quarter: 2013Q2

REPORT INFORMATION
  Report Type: Report from Study
  Country: JP (occurrence: JP)
  Receive Date: 20130321
  Receipt Date: 20130424
  Transmission Date: 20140414
  Serious: Yes (Hospitalization)
  Sender: FDA-Public Use
  Company Number: JP-ABBOTT-13P-087-1064367-00

PATIENT
  Age: 60 Year
  Sex: Male

DRUGS (20)
  1. KALETRA [Suspect]
     Indication: HIV INFECTION
     Route: 048
     Dates: start: 20111124, end: 20120110
  2. ABACAVIR W/LAMIVUDINE [Concomitant]
     Indication: HIV INFECTION
     Route: 048
     Dates: start: 20111124, end: 20120220
  3. EMTRICITABINE W/TENOFOVIR DISOPROXIL FUMARATE [Concomitant]
     Indication: HIV INFECTION
     Route: 048
     Dates: start: 20111115, end: 20111123
  4. EMTRICITABINE W/TENOFOVIR DISOPROXIL FUMARATE [Concomitant]
     Dates: start: 20120221
  5. RALTEGRAVIR POTASSIUM [Concomitant]
     Indication: HIV INFECTION
     Dosage: 800 MG DAILY
     Route: 048
     Dates: start: 20111115, end: 20111124
  6. RALTEGRAVIR POTASSIUM [Concomitant]
     Dosage: 800 MG DAILY
     Dates: start: 20120111
  7. GANCICLOVIR [Concomitant]
     Indication: CYTOMEGALOVIRUS INFECTION
     Route: 041
     Dates: start: 20111107, end: 20111121
  8. GANCICLOVIR [Concomitant]
     Dates: start: 20111207, end: 20111216
  9. AZITHROMYCIN [Concomitant]
     Indication: OPPORTUNISTIC INFECTION PROPHYLAXIS
     Dates: start: 20111121
  10. EPIRIZOLE [Concomitant]
     Indication: PNEUMOCYSTIS JIROVECII PNEUMONIA
     Dates: start: 20111111, end: 20111124
  11. VORICONAZOLE [Concomitant]
     Indication: BRONCHOPULMONARY ASPERGILLOSIS
     Dates: start: 20111107, end: 20111122
  12. VANCOMYCIN HYDROCHLORIDE [Concomitant]
     Indication: PSEUDOMEMBRANOUS COLITIS
     Dates: start: 20111117, end: 20111124
  13. MICAFUNGIN SODIUM [Concomitant]
     Indication: BRONCHOPULMONARY ASPERGILLOSIS
     Dates: start: 20111123, end: 20111219
  14. MICAFUNGIN SODIUM [Concomitant]
     Dates: start: 20120210, end: 20120301
  15. DOXORUBICIN HYDROCHLORIDE [Concomitant]
     Indication: KAPOSI^S SARCOMA
     Dates: start: 20120111, end: 20120111
  16. DOXORUBICIN HYDROCHLORIDE [Concomitant]
     Dates: start: 20120202, end: 20120202
  17. ITRACONAZOLE [Concomitant]
     Indication: BRONCHOPULMONARY ASPERGILLOSIS
     Dates: start: 20120302
  18. PREDNISOLONE [Concomitant]
     Indication: STEVENS-JOHNSON SYNDROME
     Dosage: 40-5 MG
     Dates: start: 20111124, end: 20111226
  19. CLOSTRIDIUM BUTYRICUM [Concomitant]
     Indication: DIARRHOEA
     Route: 048
     Dates: start: 20111125
  20. ANTIBIOTICS-RESISTANT LACTIC ACID BACTERIAE [Concomitant]
     Indication: DIARRHOEA
     Dates: start: 20111102, end: 20111124

REACTIONS (1)
  - Pneumothorax [Recovering/Resolving]
